FAERS Safety Report 23042707 (Version 1)
Quarter: 2023Q4

REPORT INFORMATION
  Report Type: Spontaneous
  Country: US (occurrence: US)
  Receive Date: 20231009
  Receipt Date: 20231009
  Transmission Date: 20240110
  Serious: No
  Sender: FDA-Public Use
  Company Number: US-009507513-2309USA004078

PATIENT
  Sex: Female

DRUGS (3)
  1. BELSOMRA [Suspect]
     Active Substance: SUVOREXANT
     Indication: Insomnia
     Dosage: 5 MILLIGRAM, QD
     Route: 048
     Dates: start: 202304, end: 2023
  2. BELSOMRA [Suspect]
     Active Substance: SUVOREXANT
     Dosage: 10 MILLIGRAM, QD
     Route: 048
     Dates: start: 2023, end: 2023
  3. BELSOMRA [Suspect]
     Active Substance: SUVOREXANT
     Dosage: 20 MILLIGRAM, QD
     Route: 048
     Dates: start: 2023

REACTIONS (4)
  - Logorrhoea [Unknown]
  - Hypervigilance [Unknown]
  - Mutism [Unknown]
  - Product dose omission issue [Unknown]

NARRATIVE: CASE EVENT DATE: 20230101
